FAERS Safety Report 9118288 (Version 1)
Quarter: 2013Q1

REPORT INFORMATION
  Report Type: Spontaneous
  Country: US (occurrence: None)
  Receive Date: 20130221
  Receipt Date: 20130221
  Transmission Date: 20140127
  Serious: Yes (Hospitalization)
  Sender: FDA-Public Use
  Company Number: None

PATIENT
  Age: 70 Year
  Sex: Female

DRUGS (1)
  1. ATELVIA 35 MG WARNER CHILCOTT [Suspect]
     Indication: OSTEOPOROSIS
     Dosage: 35 MG.  ONCE A WEEK
     Dates: start: 20130204

REACTIONS (3)
  - Back pain [None]
  - Middle insomnia [None]
  - Movement disorder [None]
